FAERS Safety Report 24273418 (Version 4)
Quarter: 2025Q1

REPORT INFORMATION
  Report Type: Spontaneous
  Country: JP (occurrence: JP)
  Receive Date: 20240902
  Receipt Date: 20250320
  Transmission Date: 20250408
  Serious: Yes (Death)
  Sender: ROCHE
  Company Number: JP-CHUGAI-2024029511AA

PATIENT
  Age: 7 Decade
  Sex: Male
  Weight: 63 kg

DRUGS (9)
  1. TECENTRIQ [Suspect]
     Active Substance: ATEZOLIZUMAB
     Indication: Small cell lung cancer extensive stage
     Dosage: 1200 MILLIGRAM, ONCE/3WEEKS
     Route: 042
     Dates: start: 20240808, end: 20240808
  2. ACTEMRA [Suspect]
     Active Substance: TOCILIZUMAB
     Indication: Cytokine release syndrome
     Route: 065
     Dates: start: 20240820, end: 20240820
  3. CARBOPLATIN [Suspect]
     Active Substance: CARBOPLATIN
     Indication: Small cell lung cancer extensive stage
     Route: 042
     Dates: start: 20240808, end: 20240808
  4. ETOPOSIDE [Suspect]
     Active Substance: ETOPOSIDE
     Indication: Small cell lung cancer extensive stage
     Route: 042
     Dates: start: 20240808, end: 20240813
  5. DEXAMETHASONE SODIUM PHOSPHATE [Concomitant]
     Active Substance: DEXAMETHASONE SODIUM PHOSPHATE
     Dates: start: 20240808, end: 20240813
  6. PALONOSETRON [Concomitant]
     Active Substance: PALONOSETRON
     Route: 042
     Dates: start: 20240808, end: 20240808
  7. FOSNETUPITANT CHLORIDE HYDROCHLORIDE [Concomitant]
     Active Substance: FOSNETUPITANT CHLORIDE HYDROCHLORIDE
     Route: 042
     Dates: start: 20240808, end: 20240808
  8. HERBALS [Concomitant]
     Active Substance: HERBALS
     Route: 048
     Dates: start: 20240808, end: 20240816
  9. HERBALS [Concomitant]
     Active Substance: HERBALS
     Route: 048
     Dates: start: 20240808, end: 20240816

REACTIONS (9)
  - Cytokine release syndrome [Fatal]
  - Disseminated intravascular coagulation [Fatal]
  - Pneumonia [Unknown]
  - Febrile neutropenia [Fatal]
  - Anaemia [Fatal]
  - Platelet count decreased [Fatal]
  - Small cell lung cancer extensive stage [Fatal]
  - Bronchiectasis [Unknown]
  - Multiple organ dysfunction syndrome [Fatal]
